FAERS Safety Report 8609723 (Version 5)
Quarter: 2012Q4

REPORT INFORMATION
  Report Type: 
  Country: US (occurrence: US)
  Receive Date: 20120612
  Receipt Date: 20121212
  Transmission Date: 20130627
  Serious: Yes (Hospitalization, Other)
  Sender: FDA-Public Use
  Company Number: US-PFIZER INC-2012138710

PATIENT
  Age: 80 Year
  Sex: Female
  Weight: 53.97 kg

DRUGS (10)
  1. NORVASC [Suspect]
     Indication: BLOOD PRESSURE HIGH
     Dosage: 5 mg, UNK
     Route: 048
     Dates: start: 2002, end: 201203
  2. NORVASC [Suspect]
     Dosage: UNK, 1x/day
     Route: 048
     Dates: start: 2002
  3. NORVASC [Suspect]
     Dosage: UNK
     Route: 048
     Dates: end: 201203
  4. NORVASC [Suspect]
     Dosage: UNK
     Route: 048
  5. GLIMEPIRIDE [Concomitant]
     Indication: DIABETES
     Dosage: 2 mg, 2x/day
  6. GLIMEPIRIDE [Concomitant]
     Dosage: UNK
  7. CLONIDINE [Concomitant]
     Indication: BLOOD PRESSURE HIGH
     Dosage: 0.1 mg, UNK
  8. CLONIDINE [Concomitant]
     Dosage: UNK
  9. LISINOPRIL [Concomitant]
     Indication: BLOOD PRESSURE HIGH
     Dosage: 10 mg, 2x/day
  10. LISINOPRIL [Concomitant]
     Dosage: UNK

REACTIONS (16)
  - Cerebral thrombosis [Unknown]
  - Cellulitis [Unknown]
  - Cellulitis [Not Recovered/Not Resolved]
  - Cerebrovascular accident [Unknown]
  - Eye disorder [Unknown]
  - Visual impairment [Unknown]
  - Loose tooth [Unknown]
  - Gingival discolouration [Unknown]
  - Weight decreased [Unknown]
  - Alopecia [Unknown]
  - Swelling [Unknown]
  - Blood pressure inadequately controlled [Unknown]
  - Malaise [Unknown]
  - Pain [Unknown]
  - Faeces discoloured [Unknown]
  - Skin disorder [Unknown]
